FAERS Safety Report 8965660 (Version 1)
Quarter: 2012Q4

REPORT INFORMATION
  Report Type: Spontaneous
  Country: GB (occurrence: None)
  Receive Date: 20121205
  Receipt Date: 20121205
  Transmission Date: 20130627
  Serious: Yes (Other)
  Sender: FDA-Public Use
  Company Number: AUR-APL-2012-05119

PATIENT
  Age: 55 Year
  Sex: Male
  Weight: 169.9 kg

DRUGS (4)
  1. SIMVASTATIN (SIMVASTATIN) [Suspect]
     Indication: BLOOD PRESSURE
     Dates: start: 201208, end: 201210
  2. AMLODIPINE (AMLODIPINE) [Concomitant]
  3. BENDROFLUMETHIAZIDE (BENDROFLUMETHIAZIDE) [Concomitant]
  4. CANDESARTAN (CANDESARTAN) [Concomitant]

REACTIONS (2)
  - Renal failure acute [None]
  - Hypertension [None]
